FAERS Safety Report 24078778 (Version 2)
Quarter: 2024Q3

REPORT INFORMATION
  Report Type: Other
  Country: AU (occurrence: AU)
  Receive Date: 20240711
  Receipt Date: 20240715
  Transmission Date: 20241016
  Serious: Yes (Hospitalization, Congenital Anomaly)
  Sender: DEXCEL
  Company Number: AU-DEXPHARM-2024-2306

PATIENT

DRUGS (4)
  1. LEVETIRACETAM [Suspect]
     Active Substance: LEVETIRACETAM
     Dosage: STOPPED AND RESTARTED MORE THAN ONCE DURING PREGNANCY.
  2. LEVETIRACETAM [Suspect]
     Active Substance: LEVETIRACETAM
     Dosage: STOPPED AND RESTARTED MORE THAN ONCE DURING PREGNANCY.
  3. LEVETIRACETAM [Suspect]
     Active Substance: LEVETIRACETAM
     Dosage: ACTION TAKEN WITH THE DRUG (LAST DOSE) IS UNKNOWN
  4. LACOSAMIDE [Suspect]
     Active Substance: LACOSAMIDE

REACTIONS (2)
  - Polydactyly [Unknown]
  - Foetal exposure during pregnancy [Unknown]
